FAERS Safety Report 24901255 (Version 2)
Quarter: 2025Q1

REPORT INFORMATION
  Report Type: Spontaneous
  Country: US (occurrence: US)
  Receive Date: 20250129
  Receipt Date: 20250303
  Transmission Date: 20250409
  Serious: Yes (Hospitalization)
  Sender: PFIZER
  Company Number: US-PFIZER INC-202500020525

PATIENT
  Age: 54 Year
  Sex: Female

DRUGS (12)
  1. INLYTA [Suspect]
     Active Substance: AXITINIB
     Dosage: 5 MG, 2X/DAY (DAY 1 TO 28)
     Route: 048
     Dates: start: 20250113
  2. INLYTA [Suspect]
     Active Substance: AXITINIB
     Dosage: 5 MG TABLET, TAKE 1 TABLET TWICE DAILY ON DAYS 1 THROUGH 28
     Dates: start: 20250213
  3. OMEPRAZOLE [Concomitant]
     Active Substance: OMEPRAZOLE
  4. KEYTRUDA [Concomitant]
     Active Substance: PEMBROLIZUMAB
  5. LIPITOR [Concomitant]
     Active Substance: ATORVASTATIN CALCIUM
  6. LYRICA [Concomitant]
     Active Substance: PREGABALIN
  7. ATIVAN [Concomitant]
     Active Substance: LORAZEPAM
  8. CELECOXIB [Concomitant]
     Active Substance: CELECOXIB
  9. TOPIRAMATE [Concomitant]
     Active Substance: TOPIRAMATE
  10. LASIX [Concomitant]
     Active Substance: FUROSEMIDE
  11. LISINOPRIL [Concomitant]
     Active Substance: LISINOPRIL
  12. BUSPIRONE HCL [Concomitant]
     Active Substance: BUSPIRONE HYDROCHLORIDE

REACTIONS (4)
  - Back pain [Unknown]
  - Malaise [Not Recovered/Not Resolved]
  - Epistaxis [Not Recovered/Not Resolved]
  - Diarrhoea [Not Recovered/Not Resolved]
